FAERS Safety Report 7446464-0 (Version None)
Quarter: 2011Q2

REPORT INFORMATION
  Report Type: 
  Country: None (occurrence: None)
  Receive Date: 20110429
  Receipt Date: 20110117
  Transmission Date: 20111010
  Serious: No
  Sender: FDA-Public Use
  Company Number: US-ASTRAZENECA-2010SE34405

PATIENT
  Age: 63 Year
  Sex: Female

DRUGS (3)
  1. PRILOSEC OTC [Suspect]
     Route: 048
  2. NEXIUM [Suspect]
     Route: 048
  3. PRILOSEC [Suspect]
     Route: 048

REACTIONS (10)
  - TOOTH DISORDER [None]
  - LOCALISED INFECTION [None]
  - ABNORMAL BEHAVIOUR [None]
  - INAPPROPRIATE SCHEDULE OF DRUG ADMINISTRATION [None]
  - HEAD INJURY [None]
  - CHOKING [None]
  - INCORRECT DOSE ADMINISTERED [None]
  - MALAISE [None]
  - PALPITATIONS [None]
  - DRUG INEFFECTIVE [None]
